FAERS Safety Report 25298482 (Version 2)
Quarter: 2025Q2

REPORT INFORMATION
  Report Type: Report from Study
  Country: IT (occurrence: IT)
  Receive Date: 20250512
  Receipt Date: 20250523
  Transmission Date: 20250717
  Serious: Yes (Death)
  Sender: TEVA
  Company Number: IT-TEVA-VS-3329538

PATIENT

DRUGS (2)
  1. SOTALOL [Suspect]
     Active Substance: SOTALOL
     Indication: Supraventricular tachycardia
     Route: 064
  2. DIGOXIN [Suspect]
     Active Substance: DIGOXIN
     Indication: Supraventricular tachycardia
     Route: 064

REACTIONS (2)
  - Drug ineffective [Fatal]
  - Foetal exposure during pregnancy [Unknown]
